FAERS Safety Report 14611511 (Version 1)
Quarter: 2018Q1

REPORT INFORMATION
  Report Type: Spontaneous
  Country: IT (occurrence: IT)
  Receive Date: 20180308
  Receipt Date: 20180308
  Transmission Date: 20180509
  Serious: Yes (Other)
  Sender: FDA-Public Use
  Company Number: IT-AUROBINDO-AUR-APL-2018-005295

PATIENT
  Age: 46 Year
  Sex: Female

DRUGS (3)
  1. PARACETAMOL [Suspect]
     Active Substance: ACETAMINOPHEN
     Dosage: UNK ()
     Route: 065
     Dates: start: 20180115, end: 20180115
  2. PARACETAMOL [Suspect]
     Active Substance: ACETAMINOPHEN
     Dosage: UNK ()
     Route: 065
  3. PARACETAMOL [Suspect]
     Active Substance: ACETAMINOPHEN
     Indication: PRODUCT USED FOR UNKNOWN INDICATION
     Dosage: ()
     Route: 065
     Dates: start: 20180115

REACTIONS (2)
  - Urticaria [Recovered/Resolved]
  - Drug abuse [Unknown]

NARRATIVE: CASE EVENT DATE: 20180115
